FAERS Safety Report 14656565 (Version 1)
Quarter: 2018Q1

REPORT INFORMATION
  Report Type: Spontaneous
  Country: CA (occurrence: CA)
  Receive Date: 20180319
  Receipt Date: 20180319
  Transmission Date: 20180509
  Serious: Yes (Hospitalization, Other)
  Sender: FDA-Public Use
  Company Number: CA-B.I. PHARMACEUTICALS,INC./RIDGEFIELD-2018-BI-013877

PATIENT
  Age: 74 Year
  Sex: Male

DRUGS (10)
  1. SPIOLTO [Suspect]
     Active Substance: OLODATEROL HYDROCHLORIDE\TIOTROPIUM BROMIDE MONOHYDRATE
     Indication: PRODUCT USED FOR UNKNOWN INDICATION
     Route: 065
  2. BUDESONIDE /FORMOTEROL FUMARATE [Suspect]
     Active Substance: BUDESONIDE\FORMOTEROL FUMARATE
     Indication: PRODUCT USED FOR UNKNOWN INDICATION
     Route: 065
  3. ZENHALE [Suspect]
     Active Substance: FORMOTEROL FUMARATE\MOMETASONE FUROATE
     Indication: PRODUCT USED FOR UNKNOWN INDICATION
     Route: 065
  4. BREO ELLIPTA [Suspect]
     Active Substance: FLUTICASONE FUROATE\VILANTEROL TRIFENATATE
     Indication: PRODUCT USED FOR UNKNOWN INDICATION
     Route: 055
  5. SPIRIVA [Suspect]
     Active Substance: TIOTROPIUM BROMIDE MONOHYDRATE
     Indication: PRODUCT USED FOR UNKNOWN INDICATION
     Route: 065
  6. ATROVENT [Suspect]
     Active Substance: IPRATROPIUM BROMIDE
     Indication: PRODUCT USED FOR UNKNOWN INDICATION
     Route: 065
  7. SALBUTAMOL SULFATE [Suspect]
     Active Substance: ALBUTEROL SULFATE
     Indication: PRODUCT USED FOR UNKNOWN INDICATION
     Route: 065
  8. ADVAIR HFA [Suspect]
     Active Substance: FLUTICASONE PROPIONATE\SALMETEROL XINAFOATE
     Indication: PRODUCT USED FOR UNKNOWN INDICATION
     Route: 065
  9. PREDNISONE. [Suspect]
     Active Substance: PREDNISONE
     Indication: PRODUCT USED FOR UNKNOWN INDICATION
     Route: 065
  10. OMNARIS [Suspect]
     Active Substance: CICLESONIDE
     Indication: PRODUCT USED FOR UNKNOWN INDICATION
     Route: 065

REACTIONS (25)
  - Dyspnoea [Not Recovered/Not Resolved]
  - Sputum discoloured [Not Recovered/Not Resolved]
  - Drug effect incomplete [Not Recovered/Not Resolved]
  - Asthma [Not Recovered/Not Resolved]
  - Blood count abnormal [Not Recovered/Not Resolved]
  - Bronchiectasis [Not Recovered/Not Resolved]
  - Chest discomfort [Not Recovered/Not Resolved]
  - Obstructive airways disorder [Not Recovered/Not Resolved]
  - Pneumonia [Not Recovered/Not Resolved]
  - Pulmonary function test decreased [Not Recovered/Not Resolved]
  - Pulmonary mass [Not Recovered/Not Resolved]
  - Emphysema [Not Recovered/Not Resolved]
  - Mycobacterium avium complex infection [Not Recovered/Not Resolved]
  - Nasal obstruction [Not Recovered/Not Resolved]
  - Drug ineffective [Not Recovered/Not Resolved]
  - Asthma-chronic obstructive pulmonary disease overlap syndrome [Not Recovered/Not Resolved]
  - Cough [Not Recovered/Not Resolved]
  - Lung consolidation [Not Recovered/Not Resolved]
  - Oedema [Not Recovered/Not Resolved]
  - Sinus pain [Not Recovered/Not Resolved]
  - Throat irritation [Not Recovered/Not Resolved]
  - Wheezing [Not Recovered/Not Resolved]
  - Nasal congestion [Not Recovered/Not Resolved]
  - Osteopenia [Not Recovered/Not Resolved]
  - Respiratory disorder [Not Recovered/Not Resolved]
